FAERS Safety Report 6624381 (Version 4)
Quarter: 2020Q3

REPORT INFORMATION
  Report Type: Report from Study
  Country: US (occurrence: US)
  Receive Date: 20080425
  Receipt Date: 20101216
  Transmission Date: 20201104
  Serious: Yes (Other)
  Sender: FDA-Public Use
  Company Number: US-ROCHE-560058

PATIENT

DRUGS (1)
  1. IBANDRONIC ACID. [Suspect]
     Active Substance: IBANDRONIC ACID
     Indication: OSTEOPOROSIS
     Route: 065

REACTIONS (5)
  - Back pain [Unknown]
  - Onycholysis [Unknown]
  - Spinal column injury [Unknown]
  - Visual acuity reduced [Unknown]
  - Back injury [Unknown]
